FAERS Safety Report 24576054 (Version 1)
Quarter: 2024Q4

REPORT INFORMATION
  Report Type: Spontaneous
  Country: US (occurrence: None)
  Receive Date: 20241102
  Receipt Date: 20241102
  Transmission Date: 20250115
  Serious: No
  Sender: Public
  Company Number: None

PATIENT
  Age: 58 Year
  Sex: Female
  Weight: 72 kg

DRUGS (4)
  1. AIRSUPRA [Suspect]
     Active Substance: ALBUTEROL SULFATE\BUDESONIDE
     Indication: Respiratory disorder
     Dosage: OTHER STRENGTH : MCG;?OTHER QUANTITY : 2 PUFF(S);?FREQUENCY : EVERY 6 HOURS;?
     Route: 055
     Dates: start: 20231030, end: 20231102
  2. MAGNESIUM GLYCINATE [Concomitant]
     Active Substance: MAGNESIUM GLYCINATE
  3. VITAMIN C [Concomitant]
     Active Substance: ASCORBIC ACID
  4. GARLIC [Concomitant]
     Active Substance: GARLIC

REACTIONS (2)
  - Pain in extremity [None]
  - Chest pain [None]

NARRATIVE: CASE EVENT DATE: 20231031
